FAERS Safety Report 8473160-3 (Version None)
Quarter: 2012Q2

REPORT INFORMATION
  Report Type: 
  Country: None (occurrence: None)
  Receive Date: 20120627
  Receipt Date: 20120626
  Transmission Date: 20120825
  Serious: Yes (Other)
  Sender: FDA-Public Use
  Company Number: US-PFIZER INC-2012051782

PATIENT
  Sex: Male
  Weight: 83.9 kg

DRUGS (1)
  1. LYRICA [Suspect]
     Indication: PAIN
     Dosage: 300 MG, DAILY
     Route: 048
     Dates: end: 20110101

REACTIONS (4)
  - MANIA [None]
  - PANIC ATTACK [None]
  - THERAPEUTIC RESPONSE UNEXPECTED [None]
  - DEPRESSION [None]
